FAERS Safety Report 21068714 (Version 1)
Quarter: 2022Q3

REPORT INFORMATION
  Report Type: Spontaneous
  Country: GB (occurrence: GB)
  Receive Date: 20220712
  Receipt Date: 20220712
  Transmission Date: 20221027
  Serious: Yes (Death, Life-Threatening, Hospitalization, Disabling, Other)
  Sender: FDA-Public Use
  Company Number: None

PATIENT
  Age: 48 Year
  Sex: Male
  Weight: 74 kg

DRUGS (3)
  1. VENLAFAXINE [Suspect]
     Active Substance: VENLAFAXINE HYDROCHLORIDE
     Indication: Depression
     Dosage: STARTED AT 75MG TWICE DAILY, THEN 150MG ONCE A DAY
     Route: 065
     Dates: start: 20200217
  2. PROMETHAZINE [Concomitant]
     Active Substance: PROMETHAZINE HYDROCHLORIDE
     Indication: Agitation
     Dosage: UNKNOWN
     Route: 065
     Dates: start: 20200310
  3. ZOPICLONE [Concomitant]
     Active Substance: ZOPICLONE
     Indication: Insomnia
     Dosage: UNKNOWN
     Route: 065

REACTIONS (15)
  - Medication error [Fatal]
  - Tachycardia [Fatal]
  - Suicide threat [Fatal]
  - Suicide attempt [Fatal]
  - Completed suicide [Fatal]
  - Suicidal ideation [Fatal]
  - Agitation [Fatal]
  - Paranoia [Fatal]
  - Hypertension [Fatal]
  - Mania [Fatal]
  - Abnormal behaviour [Fatal]
  - Suicidal behaviour [Fatal]
  - Hanging [Fatal]
  - Hallucination [Fatal]
  - Condition aggravated [Fatal]

NARRATIVE: CASE EVENT DATE: 20200217
